FAERS Safety Report 4801158-2 (Version None)
Quarter: 2005Q4

REPORT INFORMATION
  Report Type: 
  Country: None (occurrence: None)
  Receive Date: 20051017
  Receipt Date: 20050922
  Transmission Date: 20060501
  Serious: Yes (Other)
  Sender: FDA-Public Use
  Company Number: 200512731JP

PATIENT
  Age: 68 Year
  Sex: Male
  Weight: 44 kg

DRUGS (3)
  1. AMARYL [Suspect]
     Indication: DIABETES MELLITUS
     Route: 048
     Dates: end: 20050922
  2. METFORMIN HCL [Concomitant]
     Indication: BLOOD GLUCOSE
     Dosage: DOSE: 2 TABLETS/DAY
     Route: 048
     Dates: end: 20050922
  3. BASEN [Concomitant]
     Indication: BLOOD GLUCOSE
     Route: 048
     Dates: end: 20050922

REACTIONS (3)
  - BLOOD CREATINE PHOSPHOKINASE INCREASED [None]
  - DIABETES MELLITUS INADEQUATE CONTROL [None]
  - MALAISE [None]
